FAERS Safety Report 22265416 (Version 1)
Quarter: 2023Q2

REPORT INFORMATION
  Report Type: Spontaneous
  Country: US (occurrence: US)
  Receive Date: 20230428
  Receipt Date: 20230428
  Transmission Date: 20230722
  Serious: No
  Sender: FDA-Public Use
  Company Number: US-MYOVANT SCIENCES GMBH-2023MYSCI0300683

PATIENT
  Age: 76 Year
  Sex: Male

DRUGS (16)
  1. ORGOVYX [Suspect]
     Active Substance: RELUGOLIX
     Indication: Prostate cancer
     Dosage: 360 MILLIGRAM, ONE TIME DOSE
     Route: 048
  2. ORGOVYX [Suspect]
     Active Substance: RELUGOLIX
     Dosage: 120 MILLIGRAM, QD
     Route: 048
  3. XTANDI [Concomitant]
     Active Substance: ENZALUTAMIDE
     Indication: Prostate cancer
     Dosage: 160 MILLIGRAM, QD
     Route: 065
     Dates: start: 20230219
  4. LISINOPRIL [Concomitant]
     Active Substance: LISINOPRIL
     Indication: Hypertension
     Dosage: 20 MILLIGRAM, QD
     Route: 065
  5. DIETARY SUPPLEMENT\RESVERATROL [Concomitant]
     Active Substance: DIETARY SUPPLEMENT\RESVERATROL
     Indication: Product used for unknown indication
     Dosage: UNK, QD
     Route: 065
     Dates: start: 2013
  6. CHONDROITIN SULFATE (BOVINE) [Concomitant]
     Active Substance: CHONDROITIN SULFATE (BOVINE)
     Indication: Osteoarthritis
     Dosage: 1500 MILLIGRAM, QD
     Route: 065
     Dates: start: 2013
  7. MULTIVITAMIN                       /07504101/ [Concomitant]
     Indication: Product used for unknown indication
     Dosage: 1 DOSAGE FORM, QD
     Route: 065
     Dates: start: 2013
  8. VITAMIN B12 [Concomitant]
     Active Substance: CYANOCOBALAMIN
     Indication: Immune enhancement therapy
     Dosage: UNK
     Route: 065
  9. VITAMIN D3 [Concomitant]
     Active Substance: CHOLECALCIFEROL
     Indication: Immune enhancement therapy
     Dosage: UNK
     Route: 065
  10. TOCOPHEROL [Concomitant]
     Active Substance: TOCOPHEROL
     Indication: Immune enhancement therapy
     Dosage: UNK
     Route: 065
  11. VITAMIN C [Concomitant]
     Active Substance: ASCORBIC ACID
     Indication: Immune enhancement therapy
     Dosage: UNK
     Route: 065
  12. ZINC [Concomitant]
     Active Substance: ZINC
     Indication: Immune enhancement therapy
     Dosage: UNK
     Route: 065
  13. FENOFIBRATE [Concomitant]
     Active Substance: FENOFIBRATE
     Indication: Blood triglycerides increased
     Dosage: 160 MILLIGRAM, QD
     Route: 048
     Dates: start: 2021
  14. PRAVASTATIN [Concomitant]
     Active Substance: PRAVASTATIN
     Indication: Hypercholesterolaemia
     Dosage: 10 MILLIGRAM, QD
     Route: 065
  15. ASPIRIN [Concomitant]
     Active Substance: ASPIRIN
     Indication: Thrombosis prophylaxis
     Dosage: 81 MILLIGRAM, QD
     Route: 065
     Dates: start: 2013
  16. ASPIRIN [Concomitant]
     Active Substance: ASPIRIN
     Indication: Cerebrovascular accident prophylaxis

REACTIONS (1)
  - Therapy interrupted [Unknown]

NARRATIVE: CASE EVENT DATE: 20230301
